FAERS Safety Report 24176249 (Version 2)
Quarter: 2024Q3

REPORT INFORMATION
  Report Type: Spontaneous
  Country: PL (occurrence: PL)
  Receive Date: 20240806
  Receipt Date: 20240823
  Transmission Date: 20241017
  Serious: Yes (Hospitalization, Other)
  Sender: NOVO NORDISK
  Company Number: PL-NOVOPROD-1261045

PATIENT
  Age: 64 Year
  Sex: Female

DRUGS (4)
  1. RYBELSUS [Suspect]
     Active Substance: SEMAGLUTIDE
     Dosage: UNK
  2. RYBELSUS [Suspect]
     Active Substance: SEMAGLUTIDE
     Indication: Weight control
     Dosage: 3 MG
     Dates: start: 20240325, end: 2024
  3. RYBELSUS [Suspect]
     Active Substance: SEMAGLUTIDE
     Indication: Weight control
     Dosage: 7 MG
     Dates: end: 2024
  4. IBUPROFEN [Concomitant]
     Active Substance: IBUPROFEN
     Dosage: ADMINISTERED WHEN NEEDED

REACTIONS (4)
  - Appendicitis [Recovered/Resolved]
  - Peritonitis [Recovered/Resolved]
  - Pseudomyxoma peritonei [Unknown]
  - Product use in unapproved indication [Unknown]
